FAERS Safety Report 9471115 (Version 2)
Quarter: 2013Q3

REPORT INFORMATION
  Report Type: Spontaneous
  Country: US (occurrence: None)
  Receive Date: 20130816
  Receipt Date: 20130821
  Transmission Date: 20140515
  Serious: Yes (Hospitalization)
  Sender: FDA-Public Use
  Company Number: 2013-002573

PATIENT
  Age: 71 Year
  Sex: Female

DRUGS (8)
  1. DELZICOL [Suspect]
     Indication: COLITIS ULCERATIVE
     Route: 048
  2. ASACOL [Suspect]
     Indication: COLITIS ULCERATIVE
     Route: 048
  3. GABAPENTIN [Concomitant]
  4. VITAMIN B [Concomitant]
  5. VITAMIN D [Concomitant]
  6. OCUVITE [Concomitant]
  7. LIPID MODIFYING AGENTS [Concomitant]
  8. THYROID THERAPY [Concomitant]

REACTIONS (4)
  - Intestinal obstruction [None]
  - Constipation [None]
  - Colitis [None]
  - Postoperative adhesion [None]
